FAERS Safety Report 6048152-4 (Version None)
Quarter: 2009Q1

REPORT INFORMATION
  Report Type: 
  Country: None (occurrence: None)
  Receive Date: 20090123
  Receipt Date: 20090122
  Transmission Date: 20090719
  Serious: Yes (Life-Threatening, Hospitalization)
  Sender: FDA-Public Use
  Company Number: US-ASTRAZENECA-2009UW01921

PATIENT
  Age: 12245 Day
  Sex: Male
  Weight: 102.1 kg

DRUGS (3)
  1. CRESTOR [Suspect]
     Indication: BLOOD CHOLESTEROL INCREASED
     Route: 048
     Dates: start: 20080101, end: 20081031
  2. INSULIN [Concomitant]
     Route: 058
  3. LEXAPRO [Concomitant]
     Route: 048

REACTIONS (3)
  - BLOOD POTASSIUM INCREASED [None]
  - MUSCLE ATROPHY [None]
  - MYALGIA [None]
